FAERS Safety Report 20711858 (Version 1)
Quarter: 2022Q2

REPORT INFORMATION
  Report Type: Spontaneous
  Country: US (occurrence: US)
  Receive Date: 20220414
  Receipt Date: 20220414
  Transmission Date: 20220720
  Serious: No
  Sender: FDA-Public Use
  Company Number: US-PFIZER INC-202101032245

PATIENT
  Age: 39 Year
  Sex: Female
  Weight: 90.72 kg

DRUGS (1)
  1. CHANTIX [Suspect]
     Active Substance: VARENICLINE TARTRATE
     Dosage: 1 MG, WEEKLY (THREE CONTINUOUS WEEK 1 MG AT 42 TABLETS)

REACTIONS (5)
  - Recalled product administered [Unknown]
  - Heart rate irregular [Unknown]
  - Fatigue [Unknown]
  - Illness [Unknown]
  - Feeling jittery [Unknown]
